FAERS Safety Report 7221970-2 (Version None)
Quarter: 2011Q1

REPORT INFORMATION
  Report Type: 
  Country: None (occurrence: None)
  Receive Date: 20110112
  Receipt Date: 20050223
  Transmission Date: 20110831
  Serious: Yes (Hospitalization, Other)
  Sender: FDA-Public Use
  Company Number: B0693043A

PATIENT

DRUGS (1)
  1. DILATREND [Suspect]

REACTIONS (2)
  - RENAL FAILURE [None]
  - CARDIAC FAILURE [None]
